FAERS Safety Report 14225992 (Version 1)
Quarter: 2017Q4

REPORT INFORMATION
  Report Type: Spontaneous
  Country: US (occurrence: US)
  Receive Date: 20171127
  Receipt Date: 20171127
  Transmission Date: 20180321
  Serious: No
  Sender: FDA-Public Use
  Company Number: US-TEVA-736611USA

PATIENT
  Sex: Female

DRUGS (1)
  1. BUPROPION. [Suspect]
     Active Substance: BUPROPION

REACTIONS (5)
  - Mental disorder [Unknown]
  - Anxiety [Unknown]
  - Abnormal behaviour [Unknown]
  - Product substitution issue [Unknown]
  - Depression [Unknown]

NARRATIVE: CASE EVENT DATE: 1999
